FAERS Safety Report 10527164 (Version 1)
Quarter: 2014Q4

REPORT INFORMATION
  Report Type: Spontaneous
  Country: CA (occurrence: CA)
  Receive Date: 20141020
  Receipt Date: 20141020
  Transmission Date: 20150528
  Serious: Yes (Other)
  Sender: FDA-Public Use
  Company Number: CA-JNJFOC-20141011828

PATIENT
  Sex: Female

DRUGS (2)
  1. STELARA [Concomitant]
     Active Substance: USTEKINUMAB
     Indication: CROHN^S DISEASE
     Route: 058
     Dates: start: 20140107
  2. FENTANYL. [Suspect]
     Active Substance: FENTANYL
     Indication: ABDOMINAL PAIN
     Route: 062

REACTIONS (1)
  - Psychotic disorder [Unknown]
